FAERS Safety Report 6889640-8 (Version None)
Quarter: 2010Q3

REPORT INFORMATION
  Report Type: 
  Country: None (occurrence: None)
  Receive Date: 20100730
  Receipt Date: 20080402
  Transmission Date: 20110219
  Serious: No
  Sender: FDA-Public Use
  Company Number: US-PFIZER INC-2007103538

PATIENT
  Age: 62 Year
  Sex: Male
  Weight: 80.74 kg

DRUGS (10)
  1. LIPITOR [Suspect]
  2. GEMFIBROZIL [Suspect]
     Indication: HYPERCHOLESTEROLAEMIA
  3. WELCHOL [Suspect]
     Indication: HYPERCHOLESTEROLAEMIA
     Dosage: THREE AT SUPPER
     Dates: start: 19950101
  4. PRAVACHOL [Suspect]
     Indication: HYPERCHOLESTEROLAEMIA
     Dates: end: 20070710
  5. PRAVASTATIN [Suspect]
     Indication: HYPERCHOLESTEROLAEMIA
     Dosage: DAILY:EVERY DAY
     Dates: start: 20070710
  6. AVAPRO [Concomitant]
     Route: 048
  7. ACETAMINOPHEN [Concomitant]
     Route: 048
  8. CELEBREX [Concomitant]
     Route: 048
  9. MULTI-VITAMINS [Concomitant]
     Dosage: DAILY
  10. ACETYLSALICYLIC ACID SRT [Concomitant]

REACTIONS (2)
  - MUSCULAR WEAKNESS [None]
  - MYALGIA [None]
